FAERS Safety Report 6865917-7 (Version None)
Quarter: 2010Q3

REPORT INFORMATION
  Report Type: 
  Country: None (occurrence: None)
  Receive Date: 20100719
  Receipt Date: 20100709
  Transmission Date: 20110219
  Serious: Yes (Other)
  Sender: FDA-Public Use
  Company Number: RB-10498-2010

PATIENT
  Age: 21 Year
  Sex: Male

DRUGS (3)
  1. SUBOXONE [Suspect]
     Indication: DRUG DEPENDENCE
     Dosage: (8 MG BID SUBLINGUAL), (12 MG QD SUBLINGUAL)
     Route: 060
     Dates: start: 20100301, end: 20100501
  2. SUBOXONE [Suspect]
     Indication: DRUG DEPENDENCE
     Dosage: (8 MG BID SUBLINGUAL), (12 MG QD SUBLINGUAL)
     Route: 060
     Dates: start: 20100601
  3. CLONAZEPAM [Suspect]
     Indication: PRODUCT USED FOR UNKNOWN INDICATION

REACTIONS (21)
  - ACCIDENT [None]
  - AMNESIA [None]
  - ANXIETY [None]
  - ATTENTION DEFICIT/HYPERACTIVITY DISORDER [None]
  - COLD SWEAT [None]
  - CONCUSSION [None]
  - DEPRESSION [None]
  - EXCORIATION [None]
  - FACE INJURY [None]
  - FATIGUE [None]
  - FEAR [None]
  - FEELING ABNORMAL [None]
  - HEADACHE [None]
  - HYPERHIDROSIS [None]
  - INSOMNIA [None]
  - IRRITABILITY [None]
  - LOSS OF CONSCIOUSNESS [None]
  - MADAROSIS [None]
  - MUSCULOSKELETAL DISCOMFORT [None]
  - PAIN [None]
  - YAWNING [None]
